FAERS Safety Report 17778382 (Version 1)
Quarter: 2020Q2

REPORT INFORMATION
  Report Type: Spontaneous
  Country: GB (occurrence: GB)
  Receive Date: 20200513
  Receipt Date: 20200513
  Transmission Date: 20200714
  Serious: Yes (Hospitalization)
  Sender: FDA-Public Use
  Company Number: NVSC2020GB129062

PATIENT
  Sex: Female

DRUGS (1)
  1. CO-AMOXICLAV 250/125MG TABLETS BP [Suspect]
     Active Substance: AMOXICILLIN\CLAVULANATE POTASSIUM
     Indication: PRODUCT USED FOR UNKNOWN INDICATION
     Dosage: 1 DF
     Route: 065

REACTIONS (3)
  - Hypotension [Unknown]
  - Renal disorder [Unknown]
  - Dehydration [Unknown]
